FAERS Safety Report 16270881 (Version 1)
Quarter: 2019Q2

REPORT INFORMATION
  Report Type: Spontaneous
  Country: US (occurrence: US)
  Receive Date: 20190401
  Receipt Date: 20190401
  Transmission Date: 20190711
  Serious: No
  Sender: FDA-Public Use
  Company Number: None

PATIENT
  Age: 57 Year

DRUGS (1)
  1. OCREVUS [Suspect]
     Active Substance: OCRELIZUMAB
     Indication: MULTIPLE SCLEROSIS
     Dosage: ?          OTHER FREQUENCY:Q6 ;?
     Route: 042
     Dates: start: 20180409

REACTIONS (3)
  - Rash [None]
  - Transient acantholytic dermatosis [None]
  - Infusion related reaction [None]

NARRATIVE: CASE EVENT DATE: 20181009
